FAERS Safety Report 23793637 (Version 2)
Quarter: 2024Q2

REPORT INFORMATION
  Report Type: Spontaneous
  Country: US (occurrence: US)
  Receive Date: 20240429
  Receipt Date: 20240603
  Transmission Date: 20240716
  Serious: No
  Sender: FDA-Public Use
  Company Number: US-SA-SAC20240426000157

PATIENT
  Age: 44 Year
  Sex: Female

DRUGS (1)
  1. DUPIXENT [Suspect]
     Active Substance: DUPILUMAB
     Indication: Nasal polyps
     Dosage: 300 MG, QOW
     Route: 058
     Dates: start: 202307

REACTIONS (5)
  - Gastroenteritis viral [Unknown]
  - Vomiting [Unknown]
  - Diarrhoea [Unknown]
  - Ocular hyperaemia [Recovered/Resolved]
  - Dry eye [Recovered/Resolved]

NARRATIVE: CASE EVENT DATE: 20240101
